FAERS Safety Report 21039794 (Version 3)
Quarter: 2022Q3

REPORT INFORMATION
  Report Type: Spontaneous
  Country: CA (occurrence: CA)
  Receive Date: 20220704
  Receipt Date: 20220826
  Transmission Date: 20221027
  Serious: Yes (Death, Other)
  Sender: FDA-Public Use
  Company Number: CA-PFIZER INC-202101821629

PATIENT
  Age: 73 Year
  Sex: Male
  Weight: 113.6 kg

DRUGS (14)
  1. ZIRABEV [Suspect]
     Active Substance: BEVACIZUMAB-BVZR
     Indication: Glioblastoma
     Dosage: 1700 MG EVERY 3 WEEKS
     Route: 042
     Dates: start: 20220119
  2. ZIRABEV [Suspect]
     Active Substance: BEVACIZUMAB-BVZR
     Dosage: 1700 MG EVERY 3 WEEKS
     Route: 042
     Dates: start: 20220119
  3. ZIRABEV [Suspect]
     Active Substance: BEVACIZUMAB-BVZR
     Dosage: 1700 MG EVERY 3 WEEKS
     Route: 042
     Dates: start: 20220209
  4. ZIRABEV [Suspect]
     Active Substance: BEVACIZUMAB-BVZR
     Dosage: 1700 MG EVERY 3 WEEKS
     Route: 042
     Dates: start: 20220209
  5. ZIRABEV [Suspect]
     Active Substance: BEVACIZUMAB-BVZR
     Dosage: 1700 MG EVERY 3 WEEKS
     Route: 042
     Dates: start: 20220302
  6. ZIRABEV [Suspect]
     Active Substance: BEVACIZUMAB-BVZR
     Dosage: 1600 MG EVERY 3 WEEKS, RIGHT HAND
     Route: 042
     Dates: start: 20220323
  7. ZIRABEV [Suspect]
     Active Substance: BEVACIZUMAB-BVZR
     Dosage: 100 MG EVERY 3 WEEKS, RIGHT HAND
     Route: 042
     Dates: start: 20220323
  8. ZIRABEV [Suspect]
     Active Substance: BEVACIZUMAB-BVZR
     Dosage: 1700MG Q 3 WEEKS
     Route: 042
     Dates: start: 20220608
  9. ZIRABEV [Suspect]
     Active Substance: BEVACIZUMAB-BVZR
     Dosage: 1600 MG Q 3 WEEKS, LEFT HAND
     Route: 042
     Dates: start: 20220629
  10. ZIRABEV [Suspect]
     Active Substance: BEVACIZUMAB-BVZR
     Dosage: 50 MG Q 3 WEEKS, LEFT HAND
     Route: 042
     Dates: start: 20220629
  11. DEXAMETHASONE [Concomitant]
     Active Substance: DEXAMETHASONE
     Dosage: 4 MG
  12. LOMUSTINE [Concomitant]
     Active Substance: LOMUSTINE
     Dosage: UNK
  13. PANTOPRAZOLE SODIUM [Concomitant]
     Active Substance: PANTOPRAZOLE SODIUM
     Dosage: 40 MG
     Route: 048
  14. RIVAROXABAN [Concomitant]
     Active Substance: RIVAROXABAN
     Dosage: 10 MG
     Route: 048

REACTIONS (14)
  - Death [Fatal]
  - Loss of control of legs [Unknown]
  - Fall [Unknown]
  - Blood pressure fluctuation [Unknown]
  - Hypertension [Unknown]
  - Blood pressure increased [Unknown]
  - Heart rate decreased [Unknown]
  - Rash [Recovered/Resolved]
  - Aphonia [Unknown]
  - Dysphonia [Unknown]
  - Weight increased [Recovered/Resolved]
  - Epistaxis [Unknown]
  - Off label use [Unknown]
  - Product dose omission issue [Unknown]

NARRATIVE: CASE EVENT DATE: 20220119
